FAERS Safety Report 9031427 (Version 2)
Quarter: 2013Q1

REPORT INFORMATION
  Report Type: Spontaneous
  Country: BR (occurrence: BR)
  Receive Date: 20130124
  Receipt Date: 20130328
  Transmission Date: 20140127
  Serious: No
  Sender: FDA-Public Use
  Company Number: PHHY2013BR006663

PATIENT
  Sex: Female
  Weight: 58 kg

DRUGS (1)
  1. RITALIN LA [Suspect]
     Indication: ATTENTION DEFICIT/HYPERACTIVITY DISORDER
     Dosage: 1 DF, QD
     Route: 048

REACTIONS (5)
  - Asthenia [Recovered/Resolved]
  - Pallor [Recovered/Resolved]
  - Weight decreased [Recovering/Resolving]
  - Depressed mood [Recovered/Resolved]
  - Disturbance in attention [Not Recovered/Not Resolved]
